FAERS Safety Report 6308240-1 (Version None)
Quarter: 2009Q3

REPORT INFORMATION
  Report Type: 
  Country: None (occurrence: None)
  Receive Date: 20090813
  Receipt Date: 20090801
  Transmission Date: 20100115
  Serious: Yes (Other)
  Sender: FDA-Public Use
  Company Number: US-PFIZER INC-2009250074

PATIENT
  Age: 53 Year
  Sex: Male
  Weight: 65 kg

DRUGS (15)
  1. VARENICLINE TARTRATE [Suspect]
     Indication: SMOKING CESSATION THERAPY
     Dosage: 1 MG, 2X/DAY
  2. FUROSEMIDE [Concomitant]
  3. LACTULOSE [Concomitant]
  4. SPIRONOLACTONE [Concomitant]
  5. ZINC OXIDE [Concomitant]
  6. VITAMIN A+D [Concomitant]
  7. TRAZODONE [Concomitant]
  8. LORAZEPAM [Concomitant]
  9. PAROXETINE [Concomitant]
  10. MAGNESIUM OXIDE [Concomitant]
  11. CIPROFLOXACIN [Concomitant]
  12. HYDROMORPHONE [Concomitant]
  13. HYDROXYZINE [Concomitant]
  14. OXYCODONE [Concomitant]
  15. SIMETHICONE [Concomitant]

REACTIONS (1)
  - HEPATOTOXICITY [None]
